FAERS Safety Report 8045781-3 (Version None)
Quarter: 2012Q1

REPORT INFORMATION
  Report Type: 
  Country: None (occurrence: None)
  Receive Date: 20120113
  Receipt Date: 20120110
  Transmission Date: 20120608
  Serious: No
  Sender: FDA-Public Use
  Company Number: US-TEVA-309568USA

PATIENT
  Sex: Female
  Weight: 136.2 kg

DRUGS (3)
  1. NEOCON [Concomitant]
     Indication: CONTRACEPTION
  2. ATIVAN [Concomitant]
     Indication: ANXIETY
  3. PLAN B ONE-STEP [Suspect]
     Indication: POST COITAL CONTRACEPTION
     Dosage: 1.5 MILLIGRAM;
     Route: 048
     Dates: start: 20111111, end: 20111111

REACTIONS (2)
  - MENSTRUATION IRREGULAR [None]
  - MIGRAINE [None]
